FAERS Safety Report 10221258 (Version 1)
Quarter: 2014Q2

REPORT INFORMATION
  Report Type: Spontaneous
  Country: US (occurrence: US)
  Receive Date: 20140606
  Receipt Date: 20140606
  Transmission Date: 20141212
  Serious: No
  Sender: FDA-Public Use
  Company Number: US-GLAXOSMITHKLINE-A1069274A

PATIENT
  Age: 91 Year
  Sex: Male

DRUGS (9)
  1. BREO ELLIPTA [Suspect]
     Indication: CHRONIC OBSTRUCTIVE PULMONARY DISEASE
     Dosage: 1PUFF PER DAY
     Route: 055
     Dates: start: 20140407
  2. ATROVENT [Concomitant]
  3. COMBIVENT [Concomitant]
  4. PROAIR HFA [Concomitant]
  5. LASIX [Concomitant]
  6. LISINOPRIL [Concomitant]
  7. AMLODIPINE [Concomitant]
  8. COREG [Concomitant]
  9. DIGOXIN [Concomitant]

REACTIONS (1)
  - Tongue discolouration [Not Recovered/Not Resolved]
